FAERS Safety Report 5064423-2 (Version None)
Quarter: 2006Q3

REPORT INFORMATION
  Report Type: 
  Country: None (occurrence: None)
  Receive Date: 20060728
  Receipt Date: 20060718
  Transmission Date: 20061208
  Serious: Yes (Death, Life-Threatening, Hospitalization, Disabling, Other)
  Sender: FDA-Public Use
  Company Number: GR-BRISTOL-MYERS SQUIBB COMPANY-13457692

PATIENT
  Age: 67 Year
  Sex: Female
  Weight: 74 kg

DRUGS (6)
  1. ERBITUX [Suspect]
     Indication: COLORECTAL CANCER METASTATIC
     Route: 042
     Dates: start: 20050407, end: 20060628
  2. OXALIPLATIN [Concomitant]
     Indication: COLORECTAL CANCER METASTATIC
     Route: 041
     Dates: start: 20060405, end: 20060614
  3. FLUOROPLEX [Concomitant]
     Indication: COLORECTAL CANCER METASTATIC
     Route: 042
     Dates: start: 20060405, end: 20060614
  4. LEUCOVORIN CALCIUM [Concomitant]
     Indication: COLORECTAL CANCER METASTATIC
     Dates: start: 20060405, end: 20060614
  5. DIMETINDENE [Concomitant]
     Indication: PREMEDICATION
     Dates: start: 20060628, end: 20060628
  6. DEXAMETHASONE TAB [Concomitant]
     Indication: PREMEDICATION
     Dates: start: 20060628, end: 20060628

REACTIONS (4)
  - DISSEMINATED INTRAVASCULAR COAGULATION [None]
  - GASTROINTESTINAL HAEMORRHAGE [None]
  - HAEMOLYTIC URAEMIC SYNDROME [None]
  - INFUSION RELATED REACTION [None]
